FAERS Safety Report 10528343 (Version 1)
Quarter: 2014Q4

REPORT INFORMATION
  Report Type: Spontaneous
  Country: US (occurrence: None)
  Receive Date: 20141017
  Receipt Date: 20141017
  Transmission Date: 20150528
  Serious: No
  Sender: FDA-Public Use
  Company Number: None

PATIENT
  Age: 61 Year
  Sex: Female
  Weight: 53.07 kg

DRUGS (3)
  1. PIROXICAM. [Suspect]
     Active Substance: PIROXICAM
     Indication: BACK PAIN
     Dosage: 1 PILL DAILY ONCE DAILY TAKEN BY MOUTH
     Route: 048
     Dates: start: 20140904, end: 20140916
  2. CALCIUM [Concomitant]
     Active Substance: CALCIUM
  3. ALDARA [Concomitant]
     Active Substance: IMIQUIMOD

REACTIONS (7)
  - Eructation [None]
  - Hypertension [None]
  - Heart rate increased [None]
  - Gastrointestinal pain [None]
  - Palpitations [None]
  - Gastrointestinal disorder [None]
  - Dysphagia [None]

NARRATIVE: CASE EVENT DATE: 20141016
